FAERS Safety Report 6972504-9 (Version None)
Quarter: 2010Q3

REPORT INFORMATION
  Report Type: 
  Country: None (occurrence: None)
  Receive Date: 20100907
  Receipt Date: 20100827
  Transmission Date: 20110219
  Serious: Yes (Hospitalization, Other)
  Sender: FDA-Public Use
  Company Number: 2009SP028435

PATIENT
  Age: 25 Year
  Sex: Female
  Weight: 136.0791 kg

DRUGS (27)
  1. NUVARING [Suspect]
     Indication: CONTRACEPTION
     Dosage: ; VAG
     Route: 067
     Dates: start: 20050907, end: 20070315
  2. GEODON [Concomitant]
  3. CELEXA [Concomitant]
  4. XANAX [Concomitant]
  5. RABEPRAZOLE SODIUM [Concomitant]
  6. EFFEXOR XR [Concomitant]
  7. XANAX [Concomitant]
  8. DIFLUCAN [Concomitant]
  9. FLUOCINOLONE ACETONIDE [Concomitant]
  10. METHYLPREDNISOLONE [Concomitant]
  11. ZITHROMAX [Concomitant]
  12. TEMAZEPAM [Concomitant]
  13. LASIX [Concomitant]
  14. CLONAZEPAM [Concomitant]
  15. NULYTELY [Concomitant]
  16. OLUX [Concomitant]
  17. TOPAMAX [Concomitant]
  18. ACIPHEX [Concomitant]
  19. WELLBUTRIN [Concomitant]
  20. SEROQUEL [Concomitant]
  21. VALIUM [Concomitant]
  22. TRAZODONE HCL [Concomitant]
  23. ELAVIL [Concomitant]
  24. FLAGYL [Concomitant]
  25. LUNESTA [Concomitant]
  26. HYDROCODONE BITARTRATE AND ACETAMINOPHEN [Concomitant]
  27. ACETAMINOPHEN AND HYDROCODONE BITARTRATE [Concomitant]

REACTIONS (34)
  - ABDOMINAL PAIN LOWER [None]
  - ALCOHOL ABUSE [None]
  - ANKLE OPERATION [None]
  - ARTHRALGIA [None]
  - BIPOLAR II DISORDER [None]
  - BLADDER PAIN [None]
  - BORDERLINE PERSONALITY DISORDER [None]
  - CALCULUS URETHRAL [None]
  - CELLULITIS [None]
  - CHEST DISCOMFORT [None]
  - CHEST PAIN [None]
  - CONSTIPATION [None]
  - DEEP VEIN THROMBOSIS [None]
  - DRUG ABUSE [None]
  - DYSPNOEA [None]
  - DYSTHYMIC DISORDER [None]
  - ENDOMETRIOSIS [None]
  - GASTROENTERITIS [None]
  - HAEMATURIA [None]
  - HAEMORRHAGE [None]
  - HYPOAESTHESIA [None]
  - INTERNATIONAL NORMALISED RATIO INCREASED [None]
  - IRRITABLE BOWEL SYNDROME [None]
  - JOINT SPRAIN [None]
  - JOINT SWELLING [None]
  - MITRAL VALVE INCOMPETENCE [None]
  - MUSCLE SPASMS [None]
  - NERVE COMPRESSION [None]
  - OEDEMA PERIPHERAL [None]
  - PROTHROMBIN TIME PROLONGED [None]
  - RECTAL HAEMORRHAGE [None]
  - SKIN LACERATION [None]
  - STREPTOCOCCUS TEST POSITIVE [None]
  - VAGINAL DISCHARGE [None]
